FAERS Safety Report 6408488-1 (Version None)
Quarter: 2009Q4

REPORT INFORMATION
  Report Type: 
  Country: None (occurrence: None)
  Receive Date: 20091021
  Receipt Date: 20091014
  Transmission Date: 20100525
  Serious: Yes (Death)
  Sender: FDA-Public Use
  Company Number: US-CELGENEUS-163-21880-09101266

PATIENT
  Sex: Female

DRUGS (4)
  1. REVLIMID [Suspect]
     Indication: MYELODYSPLASTIC SYNDROME
     Route: 048
     Dates: start: 20090501, end: 20090101
  2. REVLIMID [Suspect]
     Route: 048
     Dates: start: 20070601
  3. REVLIMID [Suspect]
     Route: 048
     Dates: start: 20060501
  4. REVLIMID [Suspect]
     Route: 048
     Dates: start: 20080601, end: 20080101

REACTIONS (1)
  - DEATH [None]
